FAERS Safety Report 13268387 (Version 2)
Quarter: 2017Q1

REPORT INFORMATION
  Report Type: Report from Study
  Country: US (occurrence: US)
  Receive Date: 20170224
  Receipt Date: 20170306
  Transmission Date: 20170428
  Serious: Yes (Hospitalization)
  Sender: FDA-Public Use
  Company Number: US-ROCHE-1896727

PATIENT
  Age: 71 Year
  Sex: Male
  Weight: 105.78 kg

DRUGS (4)
  1. COTELLIC [Suspect]
     Active Substance: COBIMETINIB
     Indication: MALIGNANT MELANOMA
     Dosage: 60 MG DAILY FOR 21 CONSECUTIVE DAYS ON, FOLLOWED BY 7 DAYS REST PERIOD
     Route: 048
     Dates: start: 20161116
  2. COTELLIC [Suspect]
     Active Substance: COBIMETINIB
     Indication: METASTASES TO PLEURA
     Dosage: 2 PILLS DAILY FOR 21 DAYS THEN REST PERIOD 7 DAYS ;ONGOING: YES
     Route: 048
     Dates: start: 20161122
  3. ZELBORAF [Suspect]
     Active Substance: VEMURAFENIB
     Indication: METASTASES TO PLEURA
     Dosage: TWICE EVERYDAY MORNING 3 PILLS AND NIGHT 3 PILLS ;ONGOING: YES
     Route: 048
     Dates: start: 20161122
  4. ZELBORAF [Suspect]
     Active Substance: VEMURAFENIB
     Indication: MALIGNANT MELANOMA
     Dosage: 960 MG TWICE A DAY
     Route: 048
     Dates: start: 20161116

REACTIONS (7)
  - Dehydration [Recovered/Resolved]
  - Oedema peripheral [Recovered/Resolved]
  - Poor venous access [Recovered/Resolved]
  - Vomiting [Recovered/Resolved]
  - Pneumonia [Recovered/Resolved]
  - Rash [Unknown]
  - Pain [Unknown]

NARRATIVE: CASE EVENT DATE: 20170131
